FAERS Safety Report 24140123 (Version 1)
Quarter: 2024Q3

REPORT INFORMATION
  Report Type: Spontaneous
  Country: US (occurrence: US)
  Receive Date: 20240726
  Receipt Date: 20240726
  Transmission Date: 20241017
  Serious: No
  Sender: BIONPHARMA
  Company Number: US-Bion-013526

PATIENT
  Sex: Female

DRUGS (1)
  1. LOPERAMIDE HYDROCHLORIDE [Suspect]
     Active Substance: LOPERAMIDE HYDROCHLORIDE
     Indication: Bowel preparation
     Dosage: 2 SOFT GELS

REACTIONS (1)
  - Inappropriate schedule of product administration [Unknown]
